FAERS Safety Report 10549362 (Version 1)
Quarter: 2014Q4

REPORT INFORMATION
  Report Type: Spontaneous
  Country: US (occurrence: None)
  Receive Date: 20141016
  Receipt Date: 20141016
  Transmission Date: 20150529
  Serious: No
  Sender: FDA-Public Use
  Company Number: CABO-14004531

PATIENT
  Age: 48 Year
  Sex: Male

DRUGS (3)
  1. COMETRIQ [Suspect]
     Active Substance: CABOZANTINIB S-MALATE
     Indication: THYROID CANCER
     Route: 048
     Dates: start: 20140625
  2. PROPECIA (FINASTERIDE) [Concomitant]
  3. NALTREXONE (NALTREXONE) [Concomitant]
     Active Substance: NALTREXONE

REACTIONS (13)
  - Abdominal discomfort [None]
  - Dyspnoea [None]
  - Fatigue [None]
  - Influenza like illness [None]
  - Dysphonia [None]
  - Myalgia [None]
  - Diarrhoea [None]
  - Arthralgia [None]
  - Alopecia [None]
  - Vision blurred [None]
  - Flatulence [None]
  - Dry mouth [None]
  - Dizziness [None]

NARRATIVE: CASE EVENT DATE: 2014
